FAERS Safety Report 6521464-3 (Version None)
Quarter: 2009Q4

REPORT INFORMATION
  Report Type: 
  Country: None (occurrence: None)
  Receive Date: 20091230
  Receipt Date: 20091222
  Transmission Date: 20100525
  Serious: Yes (Other)
  Sender: FDA-Public Use
  Company Number: DE-ROCHE-676934

PATIENT
  Sex: Male

DRUGS (1)
  1. LARIAM [Suspect]
     Indication: PROPHYLAXIS
     Dosage: TAKEN FOR 4 WEEKS
     Route: 065

REACTIONS (2)
  - ERECTILE DYSFUNCTION [None]
  - PANCREATITIS [None]
